FAERS Safety Report 4269321-X (Version None)
Quarter: 2004Q1

REPORT INFORMATION
  Report Type: 
  Country: None (occurrence: None)
  Receive Date: 20040108
  Receipt Date: 20031230
  Transmission Date: 20041129
  Serious: Yes (Hospitalization)
  Sender: FDA-Public Use
  Company Number: 2003127061

PATIENT
  Age: 44 Year
  Sex: Female
  Weight: 71 kg

DRUGS (4)
  1. FLUCONAZOLE [Suspect]
     Indication: ILL-DEFINED DISORDER
     Dosage: 200 MG ORAL
     Route: 048
     Dates: start: 20030918, end: 20031027
  2. TRIZIVIR [Concomitant]
  3. KALETRA [Concomitant]
  4. AMPRENAVIR (AMPRENAVIR) [Concomitant]

REACTIONS (5)
  - ARTHRALGIA [None]
  - DRUG TOLERANCE DECREASED [None]
  - GENERAL PHYSICAL HEALTH DETERIORATION [None]
  - MYALGIA [None]
  - PRURITUS [None]
